FAERS Safety Report 12184605 (Version 1)
Quarter: 2016Q1

REPORT INFORMATION
  Report Type: Other
  Country: US (occurrence: US)
  Receive Date: 20160316
  Receipt Date: 20160316
  Transmission Date: 20160526
  Serious: No
  Sender: FDA-Public Use
  Company Number: US-IMPAX LABORATORIES, INC-2015-IPXL-00707

PATIENT

DRUGS (1)
  1. LAMOTRIGINE ODT [Suspect]
     Active Substance: LAMOTRIGINE
     Indication: PRODUCT USED FOR UNKNOWN INDICATION
     Route: 065

REACTIONS (6)
  - Product physical consistency issue [Unknown]
  - Vision blurred [Unknown]
  - Nausea [Unknown]
  - Dysgeusia [Unknown]
  - Product solubility abnormal [Unknown]
  - Headache [Unknown]
